FAERS Safety Report 16068949 (Version 2)
Quarter: 2019Q2

REPORT INFORMATION
  Report Type: Spontaneous
  Country: US (occurrence: US)
  Receive Date: 20190313
  Receipt Date: 20190617
  Transmission Date: 20190711
  Serious: No
  Sender: FDA-Public Use
  Company Number: US-SA-2019SA066673

PATIENT
  Age: 43 Year
  Sex: Female
  Weight: 58.9 kg

DRUGS (9)
  1. UREA. [Concomitant]
     Active Substance: UREA
  2. ZOLPIDEM TARTRATE. [Concomitant]
     Active Substance: ZOLPIDEM TARTRATE
  3. ESCITALOPRAM OXALATE. [Concomitant]
     Active Substance: ESCITALOPRAM OXALATE
  4. AMOXICILLIN. [Concomitant]
     Active Substance: AMOXICILLIN
  5. BENZONATATE. [Concomitant]
     Active Substance: BENZONATATE
  6. DUPIXENT [Suspect]
     Active Substance: DUPILUMAB
     Indication: DERMATITIS ATOPIC
     Dosage: 300 MG, QOW
     Dates: start: 20190201
  7. NORETHINDRONE [NORETHISTERONE] [Concomitant]
  8. TACROLIMUS. [Concomitant]
     Active Substance: TACROLIMUS
  9. FLUOCINONIDE. [Concomitant]
     Active Substance: FLUOCINONIDE

REACTIONS (9)
  - Pruritus [Unknown]
  - Eye pruritus [Recovered/Resolved]
  - Injection site mass [Unknown]
  - Nausea [Unknown]
  - Headache [Not Recovered/Not Resolved]
  - Ocular hyperaemia [Recovered/Resolved]
  - Asthenopia [Not Recovered/Not Resolved]
  - Fatigue [Unknown]
  - Dry skin [Unknown]
